FAERS Safety Report 4839015-8 (Version None)
Quarter: 2005Q4

REPORT INFORMATION
  Report Type: 
  Country: None (occurrence: None)
  Receive Date: 20051024
  Receipt Date: 20050719
  Transmission Date: 20060501
  Serious: Yes (Other)
  Sender: FDA-Public Use
  Company Number: 2005105142

PATIENT
  Age: 33 Year
  Sex: Female
  Weight: 72.5755 kg

DRUGS (2)
  1. RELPAX [Suspect]
     Indication: MIGRAINE
     Dosage: 40 MG (40 MG, 1 IN 1 D) ORAL
     Route: 048
     Dates: start: 20050719
  2. TIZANIDINE HCL [Concomitant]

REACTIONS (2)
  - MUSCLE TIGHTNESS [None]
  - PARAESTHESIA [None]
